FAERS Safety Report 21901388 (Version 2)
Quarter: 2023Q1

REPORT INFORMATION
  Report Type: Spontaneous
  Country: US (occurrence: US)
  Receive Date: 20230123
  Receipt Date: 20230125
  Transmission Date: 20230417
  Serious: No
  Sender: FDA-Public Use
  Company Number: US-SUNOVION-2023SUN000123AA

PATIENT
  Sex: Female

DRUGS (1)
  1. LATUDA [Suspect]
     Active Substance: LURASIDONE HYDROCHLORIDE
     Dosage: 30 MG (TWO LATUDA 20MG TABLETS AND MAY CUT ONE OF THE TABLETS IN HALF )
     Route: 048

REACTIONS (1)
  - Therapeutic product effect increased [Unknown]
